FAERS Safety Report 20560961 (Version 1)
Quarter: 2022Q1

REPORT INFORMATION
  Report Type: Spontaneous
  Country: CN (occurrence: None)
  Receive Date: 20220307
  Receipt Date: 20220307
  Transmission Date: 20220423
  Serious: Yes (Hospitalization)
  Sender: FDA-Public Use
  Company Number: CN-ROCHE-3041557

PATIENT
  Age: 43 Year
  Sex: Male
  Weight: 55 kg

DRUGS (3)
  1. AVASTIN [Suspect]
     Active Substance: BEVACIZUMAB
     Indication: Cancer surgery
     Route: 041
     Dates: start: 20211126
  2. OXALIPLATIN [Suspect]
     Active Substance: OXALIPLATIN
     Indication: Cancer surgery
     Route: 041
     Dates: start: 20211126
  3. GIMERACIL\OTERACIL\TEGAFUR [Suspect]
     Active Substance: GIMERACIL\OTERACIL\TEGAFUR
     Indication: Cancer surgery
     Route: 048
     Dates: start: 20211126

REACTIONS (1)
  - Myelosuppression [Recovered/Resolved]

NARRATIVE: CASE EVENT DATE: 20220217
